FAERS Safety Report 4518845-6 (Version None)
Quarter: 2004Q4

REPORT INFORMATION
  Report Type: 
  Country: None (occurrence: None)
  Receive Date: 20041206
  Receipt Date: 20041124
  Transmission Date: 20050328
  Serious: Yes (Other)
  Sender: FDA-Public Use
  Company Number: GB-JNJFOC-20041103944

PATIENT
  Sex: Female
  Weight: 90 kg

DRUGS (6)
  1. REMICADE [Suspect]
     Route: 042
  2. WARFARIN [Concomitant]
  3. METFORMIN HCL [Concomitant]
  4. SPIRONOLACTONE [Concomitant]
  5. CO-DYDRAMOL [Concomitant]
  6. CO-DYDRAMOL [Concomitant]

REACTIONS (8)
  - ERYTHEMA [None]
  - HYPERSENSITIVITY [None]
  - HYPERTENSION [None]
  - HYPOAESTHESIA [None]
  - INFUSION RELATED REACTION [None]
  - LARYNGEAL OEDEMA [None]
  - PALPITATIONS [None]
  - TACHYCARDIA [None]
